FAERS Safety Report 13179960 (Version 2)
Quarter: 2017Q1

REPORT INFORMATION
  Report Type: Spontaneous
  Country: US (occurrence: US)
  Receive Date: 20170202
  Receipt Date: 20170306
  Transmission Date: 20170428
  Serious: Yes (Death, Other)
  Sender: FDA-Public Use
  Company Number: US-SA-2017SA015283

PATIENT
  Age: 48 Year
  Sex: Male
  Weight: 137.5 kg

DRUGS (2)
  1. RENVELA [Suspect]
     Active Substance: SEVELAMER CARBONATE
     Indication: END STAGE RENAL DISEASE
     Dosage: FORM: POWDER?WITH MEALS
     Route: 065
     Dates: start: 20170112, end: 20170112
  2. CARVEDILOL. [Concomitant]
     Active Substance: CARVEDILOL

REACTIONS (8)
  - Cardiac failure [Fatal]
  - Dyspnoea [Fatal]
  - Gait disturbance [Fatal]
  - Dyspnoea exertional [Fatal]
  - Blood pressure decreased [Unknown]
  - Tunnel vision [Recovered/Resolved]
  - Chest discomfort [Recovered/Resolved]
  - Hypoacusis [Recovered/Resolved]

NARRATIVE: CASE EVENT DATE: 20170112
